FAERS Safety Report 5099627-6 (Version None)
Quarter: 2006Q3

REPORT INFORMATION
  Report Type: 
  Country: None (occurrence: None)
  Receive Date: 20060906
  Receipt Date: 20060822
  Transmission Date: 20061208
  Serious: Yes (Hospitalization)
  Sender: FDA-Public Use
  Company Number: 2006BI011884

PATIENT
  Age: 68 Year
  Sex: Female
  Weight: 53.978 kg

DRUGS (3)
  1. AVONEX [Suspect]
     Indication: MULTIPLE SCLEROSIS
     Dosage: 30  UG; QW; IM
     Route: 030
     Dates: start: 20050201, end: 20051001
  2. TYLENOL [Concomitant]
  3. INHALER [Concomitant]

REACTIONS (11)
  - AMNESIA [None]
  - BODY HEIGHT DECREASED [None]
  - EAR INFECTION [None]
  - EYEBALL RUPTURE [None]
  - GASTRIC ULCER [None]
  - HEADACHE [None]
  - MENTAL IMPAIRMENT [None]
  - MULTIPLE SCLEROSIS [None]
  - MUSCULOSKELETAL STIFFNESS [None]
  - PHARYNGOLARYNGEAL PAIN [None]
  - VISUAL ACUITY REDUCED [None]
